FAERS Safety Report 11044910 (Version 3)
Quarter: 2015Q2

REPORT INFORMATION
  Report Type: Spontaneous
  Country: SI (occurrence: SI)
  Receive Date: 20150417
  Receipt Date: 20150617
  Transmission Date: 20150821
  Serious: Yes (Other)
  Sender: FDA-Public Use
  Company Number: SI-GLAXOSMITHKLINE-SI2015GSK047684

PATIENT
  Age: 33 Year
  Sex: Male

DRUGS (3)
  1. KALETRA [Suspect]
     Active Substance: LOPINAVIR\RITONAVIR
     Indication: HIV INFECTION
     Dosage: UNK
     Dates: start: 20080425
  2. DARUNAVIR + RITONAVIR [Suspect]
     Active Substance: DARUNAVIR\RITONAVIR
     Indication: HIV INFECTION
  3. KIVEXA [Suspect]
     Active Substance: ABACAVIR SULFATE\LAMIVUDINE
     Indication: HIV INFECTION
     Dosage: UNK
     Dates: start: 20080425

REACTIONS (2)
  - Syphilis [Unknown]
  - Gastrointestinal disorder [Unknown]
